FAERS Safety Report 6168868-9 (Version None)
Quarter: 2009Q2

REPORT INFORMATION
  Report Type: 
  Country: None (occurrence: None)
  Receive Date: 20090424
  Receipt Date: 20090424
  Transmission Date: 20091009
  Serious: Yes (Other)
  Sender: FDA-Public Use
  Company Number: None

PATIENT
  Age: 30 Year
  Sex: Female
  Weight: 77.1115 kg

DRUGS (1)
  1. PROCHIEVE 4% COLUMBIA LABORATORIES [Suspect]
     Dosage: 4%  1.45 G ONCE A DAY VAG, ONCE DAILY BEFORE BED
     Route: 067
     Dates: start: 20090417, end: 20090419

REACTIONS (5)
  - ABNORMAL DREAMS [None]
  - ABORTION SPONTANEOUS [None]
  - DRUG EXPOSURE DURING PREGNANCY [None]
  - FEELING ABNORMAL [None]
  - VAGINAL HAEMORRHAGE [None]
